FAERS Safety Report 8260841-X (Version None)
Quarter: 2012Q2

REPORT INFORMATION
  Report Type: 
  Country: None (occurrence: None)
  Receive Date: 20120402
  Receipt Date: 20120319
  Transmission Date: 20120825
  Serious: Yes (Other)
  Sender: FDA-Public Use
  Company Number: US-1191230

PATIENT
  Age: 73 Year
  Sex: Female

DRUGS (4)
  1. BSS [Suspect]
     Indication: INTRAOCULAR LENS IMPLANT
     Dosage: INTRAOCULAR
     Route: 031
     Dates: start: 20120221, end: 20120221
  2. EPINEPHRINE [Concomitant]
  3. LIDOCAINE [Concomitant]
  4. BETADINE [Suspect]
     Indication: INTRAOCULAR LENS IMPLANT
     Dosage: OPHTHALMIC
     Route: 047
     Dates: start: 20120221, end: 20120221

REACTIONS (2)
  - TOXIC ANTERIOR SEGMENT SYNDROME [None]
  - MEDICATION ERROR [None]
